FAERS Safety Report 17771477 (Version 2)
Quarter: 2021Q3

REPORT INFORMATION
  Report Type: Other
  Country: NL (occurrence: NL)
  Receive Date: 20200512
  Receipt Date: 20210713
  Transmission Date: 20211014
  Serious: No
  Sender: FDA-Public Use
  Company Number: NL-ROCHE-2596345

PATIENT
  Age: 44 Year
  Sex: Female
  Weight: 64 kg

DRUGS (11)
  1. AMITRIPTYLLINE [Concomitant]
     Active Substance: AMITRIPTYLINE
     Indication: SYMPTOMATIC TREATMENT
     Route: 048
     Dates: start: 2002
  2. COLECALCIFEROL [Concomitant]
     Active Substance: CHOLECALCIFEROL
     Indication: SYMPTOMATIC TREATMENT
     Route: 048
     Dates: start: 20190705
  3. CLADRIBINE. [Concomitant]
     Active Substance: CLADRIBINE
     Dates: start: 20201116
  4. PARACETAMOL [Concomitant]
     Active Substance: ACETAMINOPHEN
     Dosage: PRN
     Route: 048
     Dates: start: 20200423, end: 20200423
  5. DESLORATADINE. [Concomitant]
     Active Substance: DESLORATADINE
     Route: 048
     Dates: start: 20200705, end: 20200712
  6. CLEMASTINE [Concomitant]
     Active Substance: CLEMASTINE
     Indication: PREMEDICATION
     Route: 042
     Dates: start: 20200423, end: 20200423
  7. SOLU?MEDROL [Concomitant]
     Active Substance: METHYLPREDNISOLONE SODIUM SUCCINATE
     Indication: PREMEDICATION
     Route: 042
     Dates: start: 20200423, end: 20200423
  8. OCRELIZUMAB. [Suspect]
     Active Substance: OCRELIZUMAB
     Route: 042
     Dates: start: 20200423, end: 20200423
  9. LEVOCETRIZINE HYDROCHLORIDE [Concomitant]
     Route: 048
     Dates: start: 20200526, end: 20200528
  10. OCRELIZUMAB. [Suspect]
     Active Substance: OCRELIZUMAB
     Indication: MULTIPLE SCLEROSIS
     Route: 042
     Dates: start: 20191003, end: 20191003
  11. OCRELIZUMAB. [Suspect]
     Active Substance: OCRELIZUMAB
     Route: 042
     Dates: start: 20191018, end: 20191018

REACTIONS (1)
  - Candida infection [Recovering/Resolving]

NARRATIVE: CASE EVENT DATE: 20200123
